FAERS Safety Report 25640421 (Version 1)
Quarter: 2025Q3

REPORT INFORMATION
  Report Type: Spontaneous
  Country: CH (occurrence: CH)
  Receive Date: 20250804
  Receipt Date: 20250804
  Transmission Date: 20251021
  Serious: Yes (Other)
  Sender: UCB
  Company Number: CH-UCBSA-2025046425

PATIENT

DRUGS (1)
  1. KEPPRA [Suspect]
     Active Substance: LEVETIRACETAM
     Indication: Epilepsy congenital

REACTIONS (3)
  - Pancytopenia [Unknown]
  - Irritability [Unknown]
  - Depressive symptom [Unknown]
